FAERS Safety Report 7167278-5 (Version None)
Quarter: 2010Q4

REPORT INFORMATION
  Report Type: 
  Country: None (occurrence: None)
  Receive Date: 20101216
  Receipt Date: 20101209
  Transmission Date: 20110411
  Serious: Yes (Other)
  Sender: FDA-Public Use
  Company Number: ES-MERCK-1012ESP00005

PATIENT
  Age: 48 Month
  Sex: Female

DRUGS (1)
  1. SINGULAIR [Suspect]
     Indication: ASTHMA
     Route: 048
     Dates: start: 20100625, end: 20101026

REACTIONS (3)
  - IRRITABILITY [None]
  - PSYCHOMOTOR HYPERACTIVITY [None]
  - TIC [None]
